FAERS Safety Report 24703841 (Version 2)
Quarter: 2025Q1

REPORT INFORMATION
  Report Type: Report from Study
  Country: US (occurrence: US)
  Receive Date: 20241206
  Receipt Date: 20250113
  Transmission Date: 20250409
  Serious: Yes (Other)
  Sender: ABBVIE
  Company Number: US-ABBVIE-5861719

PATIENT
  Age: 71 Year
  Sex: Female

DRUGS (2)
  1. RISANKIZUMAB [Suspect]
     Active Substance: RISANKIZUMAB
     Indication: Psoriasis
     Route: 058
     Dates: start: 20210429, end: 20230921
  2. CYCLOSPORINE [Concomitant]
     Active Substance: CYCLOSPORINE
     Indication: Psoriasis
     Dosage: CYCLOSPORIN A ?AT BED TIME
     Route: 048
     Dates: start: 201909, end: 20210607

REACTIONS (1)
  - Mycobacterium avium complex infection [Recovering/Resolving]

NARRATIVE: CASE EVENT DATE: 20230103
